FAERS Safety Report 7846451-4 (Version None)
Quarter: 2011Q4

REPORT INFORMATION
  Report Type: 
  Country: None (occurrence: None)
  Receive Date: 20111025
  Receipt Date: 20111025
  Transmission Date: 20120403
  Serious: Yes (Hospitalization, Other)
  Sender: FDA-Public Use
  Company Number: None

PATIENT
  Age: 3 Year
  Sex: Male
  Weight: 16.329 kg

DRUGS (1)
  1. CANTHACUR [Suspect]
     Indication: MOLLUSCUM CONTAGIOSUM
     Dosage: APPLIED TO EACH LESION
     Dates: start: 20111021, end: 20111021

REACTIONS (8)
  - WRONG TECHNIQUE IN DRUG USAGE PROCESS [None]
  - APPLICATION SITE BURN [None]
  - INCORRECT DRUG ADMINISTRATION DURATION [None]
  - BURNS SECOND DEGREE [None]
  - HYPERHIDROSIS [None]
  - TREMOR [None]
  - PAIN [None]
  - GAIT DISTURBANCE [None]
